FAERS Safety Report 8981355 (Version 2)
Quarter: 2012Q4

REPORT INFORMATION
  Report Type: 
  Country: US (occurrence: US)
  Receive Date: 20121221
  Receipt Date: 20121227
  Transmission Date: 20130627
  Serious: Yes (Hospitalization)
  Sender: FDA-Public Use
  Company Number: US-BAYER-2012-133377

PATIENT
  Age: 42 Year
  Sex: Female

DRUGS (10)
  1. YAZ [Suspect]
  2. YASMIN [Suspect]
     Indication: HAIRINESS
  3. YASMIN [Suspect]
     Indication: MENSTRUAL CYCLE MANAGEMENT
  4. HYDROCHLOROTHIAZIDE [Concomitant]
  5. SYNTHROID [Concomitant]
  6. LIPITOR [Concomitant]
  7. XOPENEX [Concomitant]
  8. AVELOX [Concomitant]
  9. ADVAIR [Concomitant]
  10. PROAIR HFA [Concomitant]

REACTIONS (1)
  - Pulmonary embolism [Recovering/Resolving]
